FAERS Safety Report 4390656-4 (Version None)
Quarter: 2004Q3

REPORT INFORMATION
  Report Type: 
  Country: None (occurrence: None)
  Receive Date: 20040706
  Receipt Date: 20040401
  Transmission Date: 20050211
  Serious: Yes (Other)
  Sender: FDA-Public Use
  Company Number: BE-MERCK-0404BEL00016

PATIENT
  Age: 11 Year
  Sex: Female
  Weight: 35 kg

DRUGS (4)
  1. DESLORATADINE [Concomitant]
     Indication: CHRONIC SINUSITIS
     Route: 048
     Dates: start: 20040211
  2. MOMETASONE FUROATE [Concomitant]
     Indication: CHRONIC SINUSITIS
     Route: 055
     Dates: start: 20040211
  3. SINGULAIR [Suspect]
     Indication: ASTHMA
     Route: 048
     Dates: start: 20040211, end: 20040301
  4. SINGULAIR [Suspect]
     Route: 048
     Dates: start: 20040320

REACTIONS (4)
  - CROHN'S DISEASE [None]
  - HEPATIC STEATOSIS [None]
  - LYMPHADENITIS [None]
  - PRESCRIBED OVERDOSE [None]
